FAERS Safety Report 6497052-4 (Version None)
Quarter: 2009Q4

REPORT INFORMATION
  Report Type: 
  Country: None (occurrence: None)
  Receive Date: 20091215
  Receipt Date: 20090306
  Transmission Date: 20100525
  Serious: No
  Sender: FDA-Public Use
  Company Number: A0767981A

PATIENT
  Age: 80 Year
  Sex: Male

DRUGS (4)
  1. AVODART [Suspect]
     Indication: BENIGN PROSTATIC HYPERPLASIA
     Dosage: .5MG PER DAY
     Route: 048
     Dates: start: 20090120
  2. CRESTOR [Concomitant]
  3. LISINOPRIL [Concomitant]
  4. MULTI-VITAMIN [Concomitant]

REACTIONS (2)
  - DYSURIA [None]
  - POLLAKIURIA [None]
